FAERS Safety Report 25881879 (Version 1)
Quarter: 2025Q4

REPORT INFORMATION
  Report Type: Report from Study
  Country: US (occurrence: US)
  Receive Date: 20251005
  Receipt Date: 20251005
  Transmission Date: 20260119
  Serious: Yes (Other)
  Sender: ABBVIE
  Company Number: US-ABBVIE-6484841

PATIENT
  Age: 67 Year
  Sex: Female

DRUGS (2)
  1. RINVOQ [Suspect]
     Active Substance: UPADACITINIB
     Indication: Product used for unknown indication
     Route: 048
     Dates: start: 20250928
  2. RINVOQ [Suspect]
     Active Substance: UPADACITINIB
     Indication: Product used for unknown indication
     Route: 048
     Dates: end: 20250827

REACTIONS (4)
  - Joint arthroplasty [Recovering/Resolving]
  - Arthrodesis [Recovering/Resolving]
  - Pain [Unknown]
  - Pain in extremity [Recovering/Resolving]

NARRATIVE: CASE EVENT DATE: 20250901
